FAERS Safety Report 4977770-7 (Version None)
Quarter: 2006Q1

REPORT INFORMATION
  Report Type: 
  Country: None (occurrence: None)
  Receive Date: 20060215
  Receipt Date: 20050705
  Transmission Date: 20060701
  Serious: Yes (Other)
  Sender: FDA-Public Use
  Company Number: MC200500583

PATIENT
  Age: 72 Year
  Sex: Female

DRUGS (4)
  1. ANGIOMAX [Suspect]
     Dosage: 75 MG/KG, BOLUS, IV BOLUS
     Route: 040
     Dates: start: 20050627, end: 20050627
  2. ANGIOMAX [Suspect]
     Dosage: 1.75 MG/KG, HR, INTRAVENOUS
     Route: 042
     Dates: start: 20050627
  3. PLAVIX [Concomitant]
  4. ASPIRIN [Concomitant]

REACTIONS (1)
  - CORONARY ARTERY THROMBOSIS [None]
